FAERS Safety Report 5882220-2 (Version None)
Quarter: 2008Q3

REPORT INFORMATION
  Report Type: 
  Country: None (occurrence: None)
  Receive Date: 20080912
  Receipt Date: 20080827
  Transmission Date: 20090109
  Serious: Yes (Hospitalization)
  Sender: FDA-Public Use
  Company Number: US-ABBOTT-08P-163-0466419-00

PATIENT
  Sex: Female
  Weight: 97.156 kg

DRUGS (9)
  1. HUMIRA [Suspect]
     Indication: RHEUMATOID ARTHRITIS
     Route: 058
     Dates: start: 20080331
  2. WARFARIN SODIUM [Concomitant]
     Indication: DRUG USE FOR UNKNOWN INDICATION
  3. ACETAMINOPHEN W/ PROPOXYPHENE HCL [Concomitant]
     Indication: PAIN
  4. METOPROLOL TARTRATE [Concomitant]
     Indication: HYPERTENSION
  5. METHOTREXATE [Concomitant]
     Indication: RHEUMATOID ARTHRITIS
  6. KLOR-CON [Concomitant]
     Indication: ELECTROLYTE SUBSTITUTION THERAPY
  7. CLONIDINE [Concomitant]
     Indication: HYPERTENSION
  8. ATORVASTATIN CALCIUM [Concomitant]
     Indication: BLOOD CHOLESTEROL INCREASED
  9. LIDOCAINE [Concomitant]
     Indication: PAIN
     Dosage: PATCH

REACTIONS (2)
  - BLOOD PRESSURE INCREASED [None]
  - CORONARY ARTERY OCCLUSION [None]
